FAERS Safety Report 5819664-0 (Version None)
Quarter: 2008Q3

REPORT INFORMATION
  Report Type: 
  Country: None (occurrence: None)
  Receive Date: 20080723
  Receipt Date: 20080715
  Transmission Date: 20090109
  Serious: Yes (Other)
  Sender: FDA-Public Use
  Company Number: US-GENENTECH-263905

PATIENT
  Sex: Female
  Weight: 74.83 kg

DRUGS (7)
  1. HERCEPTIN [Suspect]
     Indication: BREAST CANCER
     Dosage: 4 MG/KG, SINGLE
     Route: 042
     Dates: start: 20071129
  2. HERCEPTIN [Suspect]
     Dosage: 2 MG/KG, 1/WEEK
     Route: 042
  3. HERCEPTIN [Suspect]
     Dosage: 6 MG/KG, Q3W
     Route: 042
  4. TAXOL [Concomitant]
     Indication: BREAST CANCER
     Dosage: UNK, 1/WEEK
  5. CELEXA [Concomitant]
     Indication: DRUG USE FOR UNKNOWN INDICATION
     Dosage: 20 MG, QD
  6. LISINOPRIL [Concomitant]
     Indication: DRUG USE FOR UNKNOWN INDICATION
     Dosage: 10 MG, QD
     Dates: start: 20080403, end: 20080418
  7. LEVOTHYROXINE SODIUM [Concomitant]
     Indication: DRUG USE FOR UNKNOWN INDICATION
     Dosage: 150 MG, QD

REACTIONS (4)
  - ALANINE AMINOTRANSFERASE INCREASED [None]
  - ASPARTATE AMINOTRANSFERASE INCREASED [None]
  - BLOOD ALKALINE PHOSPHATASE INCREASED [None]
  - HEPATIC ENZYME INCREASED [None]
